FAERS Safety Report 5749585-3 (Version None)
Quarter: 2008Q2

REPORT INFORMATION
  Report Type: 
  Country: None (occurrence: None)
  Receive Date: 20080527
  Receipt Date: 20080520
  Transmission Date: 20081010
  Serious: Yes (Life-Threatening)
  Sender: FDA-Public Use
  Company Number: BR-BAXTER-2008BH001991

PATIENT
  Age: 57 Year
  Sex: Female
  Weight: 55 kg

DRUGS (4)
  1. ALBUMIN (HUMAN) [Suspect]
     Indication: HEPATIC CIRRHOSIS
     Route: 042
     Dates: start: 20080126, end: 20080201
  2. CAPTOPRIL [Concomitant]
     Indication: HYPERTENSION
     Route: 048
     Dates: start: 20080121, end: 20080219
  3. NPH ILETIN II [Concomitant]
     Indication: DIABETES MELLITUS
     Route: 065
     Dates: start: 20080121, end: 20080219
  4. PROPRANOLOL [Concomitant]
     Indication: HYPERTENSION
     Route: 048
     Dates: start: 20080121, end: 20080219

REACTIONS (2)
  - ANXIETY [None]
  - FEELING ABNORMAL [None]
